FAERS Safety Report 4690469-X (Version None)
Quarter: 2005Q2

REPORT INFORMATION
  Report Type: 
  Country: None (occurrence: None)
  Receive Date: 20050613
  Receipt Date: 20050613
  Transmission Date: 20051028
  Serious: Yes (Hospitalization)
  Sender: FDA-Public Use
  Company Number: None

PATIENT
  Age: 88 Year
  Sex: Female
  Weight: 48.5 kg

DRUGS (1)
  1. DULOXETINE  30MG ELI LILLY [Suspect]
     Indication: ANOREXIA
     Dosage: 30MG  DAILY ORAL
     Route: 048
     Dates: start: 20050525, end: 20050603

REACTIONS (3)
  - HALLUCINATION [None]
  - LEUKOCYTOSIS [None]
  - MENTAL STATUS CHANGES [None]
